FAERS Safety Report 20130919 (Version 1)
Quarter: 2021Q4

REPORT INFORMATION
  Report Type: Spontaneous
  Country: CA (occurrence: CA)
  Receive Date: 20211130
  Receipt Date: 20211130
  Transmission Date: 20220304
  Serious: Yes (Other)
  Sender: FDA-Public Use
  Company Number: CA-TAKEDA-2021TUS074874

PATIENT
  Age: 56 Year
  Sex: Male
  Weight: 97 kg

DRUGS (14)
  1. MESALAMINE [Suspect]
     Active Substance: MESALAMINE
     Indication: Product used for unknown indication
     Route: 065
  2. INFLECTRA [Suspect]
     Active Substance: INFLIXIMAB-DYYB
     Indication: Colitis ulcerative
     Dosage: 1000 MILLIGRAM, Q4WEEKS
     Route: 042
     Dates: start: 20210401, end: 20210401
  3. INFLECTRA [Suspect]
     Active Substance: INFLIXIMAB-DYYB
     Dosage: 1000 MILLIGRAM, Q4WEEKS
     Route: 042
     Dates: start: 20210409, end: 20210409
  4. INFLECTRA [Suspect]
     Active Substance: INFLIXIMAB-DYYB
     Dosage: 1000 MILLIGRAM, Q4WEEKS
     Route: 042
     Dates: start: 20210506, end: 20210506
  5. INFLECTRA [Suspect]
     Active Substance: INFLIXIMAB-DYYB
     Dosage: 1000 MILLIGRAM, Q4WEEKS
     Route: 042
     Dates: start: 20210602, end: 20210602
  6. INFLECTRA [Suspect]
     Active Substance: INFLIXIMAB-DYYB
     Dosage: 1000 MILLIGRAM, Q4WEEKS
     Route: 042
     Dates: start: 20210628
  7. INFLECTRA [Suspect]
     Active Substance: INFLIXIMAB-DYYB
     Dosage: 1000 MILLIGRAM
     Route: 042
     Dates: start: 20210728
  8. INFLECTRA [Suspect]
     Active Substance: INFLIXIMAB-DYYB
     Dosage: 1000 MILLIGRAM
     Route: 042
     Dates: start: 20210825
  9. INFLECTRA [Suspect]
     Active Substance: INFLIXIMAB-DYYB
     Dosage: 1000 MILLIGRAM, Q4WEEKS
     Route: 042
     Dates: start: 20210923
  10. INFLECTRA [Suspect]
     Active Substance: INFLIXIMAB-DYYB
     Dosage: 1000 MILLIGRAM
     Route: 042
     Dates: start: 20210923
  11. INFLECTRA [Suspect]
     Active Substance: INFLIXIMAB-DYYB
     Dosage: 1000 MILLIGRAM
     Route: 042
     Dates: start: 20211020
  12. AZATHIOPRINE [Concomitant]
     Active Substance: AZATHIOPRINE
  13. PANTOPRAZOLE [Concomitant]
     Active Substance: PANTOPRAZOLE
  14. PREDNISONE [Concomitant]
     Active Substance: PREDNISONE
     Indication: Product used for unknown indication
     Route: 065

REACTIONS (6)
  - Rectal haemorrhage [Unknown]
  - Weight decreased [Unknown]
  - Drug ineffective [Unknown]
  - Condition aggravated [Unknown]
  - Off label use [Unknown]
  - Product dose omission issue [Unknown]

NARRATIVE: CASE EVENT DATE: 20210401
